FAERS Safety Report 19102963 (Version 1)
Quarter: 2021Q2

REPORT INFORMATION
  Report Type: Spontaneous
  Country: US (occurrence: US)
  Receive Date: 20210407
  Receipt Date: 20210407
  Transmission Date: 20210717
  Serious: Yes (Other)
  Sender: FDA-Public Use
  Company Number: US-GLAXOSMITHKLINE-US2021GSK075676

PATIENT
  Sex: Female

DRUGS (8)
  1. RANITIDINE. [Suspect]
     Active Substance: RANITIDINE
     Dosage: 300 MG, WOULD TAKE DAILY OR AS NEEDED DEPENDING ON THE MONTH
     Route: 065
     Dates: start: 199701, end: 201906
  2. ZANTAC [Suspect]
     Active Substance: RANITIDINE HYDROCHLORIDE
     Dosage: 300 MG, WOULD TAKE DAILY OR AS NEEDED DEPENDING ON THE MONTH
     Route: 065
     Dates: start: 198601, end: 201912
  3. ZANTAC [Suspect]
     Active Substance: RANITIDINE HYDROCHLORIDE
     Dosage: 300 MG, WOULD TAKE DAILY OR AS NEEDED DEPENDING ON THE MONTH
     Route: 065
     Dates: start: 198601, end: 201912
  4. ZANTAC [Suspect]
     Active Substance: RANITIDINE HYDROCHLORIDE
     Indication: DYSPEPSIA
     Dosage: 150 MG, WOULD TAKE DAILY OR AS NEEDED DEPENDING ON THE MONTH
     Route: 065
     Dates: start: 198601, end: 201912
  5. ZANTAC [Suspect]
     Active Substance: RANITIDINE HYDROCHLORIDE
     Indication: DYSPEPSIA
     Dosage: 150 MG, WOULD TAKE DAILY OR AS NEEDED DEPENDING ON THE MONTH
     Route: 065
     Dates: start: 198601, end: 201912
  6. RANITIDINE. [Suspect]
     Active Substance: RANITIDINE
     Indication: DYSPEPSIA
     Dosage: 150 MG, WOULD TAKE DAILY OR AS NEEDED DEPENDING ON THE MONTH
     Route: 065
     Dates: start: 199701, end: 201906
  7. RANITIDINE. [Suspect]
     Active Substance: RANITIDINE
     Dosage: 300 MG, WOULD TAKE DAILY OR AS NEEDED DEPENDING ON THE MONTH
     Route: 065
     Dates: start: 199701, end: 201906
  8. RANITIDINE. [Suspect]
     Active Substance: RANITIDINE
     Indication: DYSPEPSIA
     Dosage: 150 MG, WOULD TAKE DAILY OR AS NEEDED DEPENDING ON THE MONTH
     Route: 065
     Dates: start: 199701, end: 201906

REACTIONS (1)
  - Thyroid cancer [Unknown]
